FAERS Safety Report 5960092-5 (Version None)
Quarter: 2008Q4

REPORT INFORMATION
  Report Type: 
  Country: None (occurrence: None)
  Receive Date: 20081120
  Receipt Date: 20081110
  Transmission Date: 20090506
  Serious: Yes (Other)
  Sender: FDA-Public Use
  Company Number: NL-WYE-H06801308

PATIENT
  Age: 61 Year
  Sex: Female

DRUGS (2)
  1. TYGACIL [Suspect]
     Indication: ESCHERICHIA URINARY TRACT INFECTION
     Dosage: UNKNOWN
     Route: 042
  2. CYCLOSPORINE [Interacting]
     Indication: PROPHYLAXIS AGAINST TRANSPLANT REJECTION
     Dosage: 120 MG DAILY
     Route: 065

REACTIONS (3)
  - BLOOD CREATININE INCREASED [None]
  - DRUG INTERACTION [None]
  - DRUG LEVEL INCREASED [None]
